FAERS Safety Report 9568563 (Version 1)
Quarter: 2013Q3

REPORT INFORMATION
  Report Type: Spontaneous
  Country: US (occurrence: US)
  Receive Date: 20130930
  Receipt Date: 20130930
  Transmission Date: 20140515
  Serious: No
  Sender: FDA-Public Use
  Company Number: US-AMGEN-USASP2013062845

PATIENT
  Age: 59 Year
  Sex: Male
  Weight: 94.33 kg

DRUGS (7)
  1. ENBREL [Suspect]
     Indication: PRODUCT USED FOR UNKNOWN INDICATION
     Dosage: 50 MG, QWK
     Route: 058
  2. TURMERIC                           /01079602/ [Concomitant]
     Dosage: 450 MG, UNK
  3. FISH OIL [Concomitant]
     Dosage: UNK
  4. VITAMIN D                          /00107901/ [Concomitant]
     Dosage: 1000 IU, UNK
  5. VITAMIN B12                        /00056201/ [Concomitant]
     Dosage: 500 MUG, UNK
  6. COQ 10 [Concomitant]
     Dosage: 100 MG, UNK
  7. ESTER-C                            /00008001/ [Concomitant]
     Dosage: UNK

REACTIONS (2)
  - Joint stiffness [Unknown]
  - Musculoskeletal stiffness [Unknown]
